FAERS Safety Report 4842050-7 (Version None)
Quarter: 2005Q4

REPORT INFORMATION
  Report Type: 
  Country: None (occurrence: None)
  Receive Date: 20051130
  Receipt Date: 20051116
  Transmission Date: 20060501
  Serious: Yes (Other)
  Sender: FDA-Public Use
  Company Number: RO-NOVOPROD-248761

PATIENT
  Age: 81 Year
  Sex: Male

DRUGS (1)
  1. ACTRAPID [Suspect]
     Indication: ILL-DEFINED DISORDER
     Dosage: 10 IU, UNK
     Route: 030

REACTIONS (1)
  - PNEUMONIA [None]
